FAERS Safety Report 14744560 (Version 6)
Quarter: 2018Q2

REPORT INFORMATION
  Report Type: Report from Study
  Country: CA (occurrence: CA)
  Receive Date: 20180411
  Receipt Date: 20180614
  Transmission Date: 20180711
  Serious: Yes (Death, Other)
  Sender: FDA-Public Use
  Company Number: CA-ROCHE-2057138

PATIENT
  Age: 27 Year
  Sex: Male
  Weight: 85.4 kg

DRUGS (12)
  1. AVASTIN [Suspect]
     Active Substance: BEVACIZUMAB
     Route: 042
     Dates: start: 20180313
  2. TYLENOL [Concomitant]
     Active Substance: ACETAMINOPHEN
     Dosage: 650 (UNIT NOT REPORTED)
     Route: 048
  3. METHYLPREDNISOLONE. [Concomitant]
     Active Substance: METHYLPREDNISOLONE
     Route: 042
  4. CCNU [Concomitant]
     Active Substance: LOMUSTINE
     Route: 065
  5. AVASTIN [Suspect]
     Active Substance: BEVACIZUMAB
     Indication: BRAIN NEOPLASM MALIGNANT
     Route: 042
     Dates: start: 20171108
  6. ATIVAN [Concomitant]
     Active Substance: LORAZEPAM
     Route: 065
     Dates: start: 20170327
  7. ACETAMINOPHEN. [Concomitant]
     Active Substance: ACETAMINOPHEN
     Route: 048
  8. SOLU-MEDROL [Concomitant]
     Active Substance: METHYLPREDNISOLONE SODIUM SUCCINATE
     Route: 048
  9. AVASTIN [Suspect]
     Active Substance: BEVACIZUMAB
     Route: 042
     Dates: start: 20180329, end: 20180329
  10. CLONIDINE. [Concomitant]
     Active Substance: CLONIDINE
     Route: 048
     Dates: start: 20180327
  11. CORTISONE [Concomitant]
     Active Substance: CORTISONE\HYDROCORTISONE
  12. BENADRYL [Concomitant]
     Active Substance: DIPHENHYDRAMINE HYDROCHLORIDE
     Route: 048

REACTIONS (33)
  - Lymphocyte count decreased [Unknown]
  - Alanine aminotransferase increased [Unknown]
  - Bilirubin urine present [Unknown]
  - Weight increased [Unknown]
  - Blindness unilateral [Unknown]
  - Anxiety [Unknown]
  - Bacterial test positive [Unknown]
  - White blood cells urine positive [Unknown]
  - Vision blurred [Unknown]
  - Hypoaesthesia [Not Recovered/Not Resolved]
  - Red blood cell count decreased [Recovered/Resolved]
  - Neutrophil percentage increased [Recovered/Resolved]
  - Mobility decreased [Unknown]
  - Fatigue [Unknown]
  - White blood cell count increased [Unknown]
  - Protein urine present [Unknown]
  - Urine analysis abnormal [Unknown]
  - Headache [Unknown]
  - Monocyte count decreased [Unknown]
  - Muscular weakness [Unknown]
  - Assisted suicide [Fatal]
  - Neutrophil count increased [Unknown]
  - Red cell distribution width increased [Unknown]
  - Platelet count decreased [Unknown]
  - Monocyte percentage increased [Unknown]
  - Urine abnormality [Unknown]
  - Hypertension [Unknown]
  - Ill-defined disorder [Not Recovered/Not Resolved]
  - Monocyte count increased [Recovered/Resolved]
  - Pruritus [Unknown]
  - Weight decreased [Unknown]
  - Balance disorder [Unknown]
  - Blood bilirubin increased [Unknown]

NARRATIVE: CASE EVENT DATE: 20180128
